FAERS Safety Report 7693712-8 (Version None)
Quarter: 2011Q3

REPORT INFORMATION
  Report Type: 
  Country: None (occurrence: None)
  Receive Date: 20110819
  Receipt Date: 20110810
  Transmission Date: 20111222
  Serious: Yes (Other)
  Sender: FDA-Public Use
  Company Number: US-JNJFOC-20090500370

PATIENT
  Sex: Male
  Weight: 73.1 kg

DRUGS (3)
  1. METHOTREXATE [Suspect]
     Indication: ILL-DEFINED DISORDER
     Dates: end: 20090101
  2. ANTIBIOTICS [Concomitant]
     Indication: INFLAMMATORY BOWEL DISEASE
  3. INFLIXIMAB [Suspect]
     Indication: INFLAMMATORY BOWEL DISEASE
     Route: 042

REACTIONS (1)
  - INFLUENZA [None]
